FAERS Safety Report 9499745 (Version 2)
Quarter: 2013Q3

REPORT INFORMATION
  Report Type: Spontaneous
  Country: FR (occurrence: FR)
  Receive Date: 20130905
  Receipt Date: 20130920
  Transmission Date: 20140515
  Serious: No
  Sender: FDA-Public Use
  Company Number: FR-JNJFOC-20130817037

PATIENT
  Age: 45 Year
  Sex: Female
  Weight: 120 kg

DRUGS (3)
  1. DUROGESIC [Suspect]
     Indication: MUSCULOSKELETAL PAIN
     Route: 062
  2. DUROGESIC [Suspect]
     Indication: MUSCULOSKELETAL PAIN
     Route: 062
     Dates: start: 20130823
  3. ABSTRAL [Concomitant]
     Dosage: 2 TO 3
     Route: 048

REACTIONS (4)
  - Drug dose omission [Unknown]
  - Product quality issue [Unknown]
  - Drug withdrawal syndrome [Unknown]
  - Product quality issue [Unknown]
